FAERS Safety Report 9172826 (Version 1)
Quarter: 2012Q4

REPORT INFORMATION
  Report Type: 
  Country: FR (occurrence: FR)
  Receive Date: 20120911
  Receipt Date: 20120911
  Transmission Date: 20130627
  Serious: Yes (Hospitalization, Other)
  Sender: FDA-Public Use
  Company Number: FR-RB-044047-12

PATIENT
  Age: 37 Year
  Sex: Male

DRUGS (2)
  1. BUPRENORPHINE [Suspect]
     Route: 065
  2. BUPRENORPHINE [Suspect]
     Indication: DRUG DEPENDENCE
     Route: 065

REACTIONS (8)
  - Delusion [Recovered/Resolved]
  - Hallucination, auditory [Recovered/Resolved]
  - Anxiety [Recovered/Resolved]
  - Suicide attempt [Recovered/Resolved]
  - Thermal burn [Recovered/Resolved]
  - Underdose [Recovered/Resolved]
  - Withdrawal syndrome [Recovered/Resolved]
  - Blast injury [Recovered/Resolved]
